FAERS Safety Report 24547084 (Version 1)
Quarter: 2024Q4

REPORT INFORMATION
  Report Type: Spontaneous
  Country: TW (occurrence: TW)
  Receive Date: 20241025
  Receipt Date: 20241025
  Transmission Date: 20250115
  Serious: Yes (Hospitalization)
  Sender: JOHNSON AND JOHNSON
  Company Number: TW-MTPC-MTPC2024-0021668

PATIENT
  Age: 51 Year
  Sex: Female

DRUGS (2)
  1. CANAGLIFLOZIN [Suspect]
     Active Substance: CANAGLIFLOZIN
     Indication: Proteinuria
     Dosage: 100 MILLIGRAM, QD
     Route: 048
  2. CANAGLIFLOZIN\TENELIGLIPTIN [Suspect]
     Active Substance: CANAGLIFLOZIN\TENELIGLIPTIN
     Indication: Proteinuria
     Dosage: 100 MILLIGRAM, QD
     Route: 048

REACTIONS (7)
  - Diabetic ketoacidosis [Unknown]
  - COVID-19 [Unknown]
  - Abdominal pain upper [Unknown]
  - Vomiting [Unknown]
  - Oesophageal ulcer [Unknown]
  - Abdominal pain upper [Unknown]
  - Cough [Unknown]

NARRATIVE: CASE EVENT DATE: 20230514
